FAERS Safety Report 6653060-1 (Version None)
Quarter: 2010Q1

REPORT INFORMATION
  Report Type: 
  Country: None (occurrence: None)
  Receive Date: 20100326
  Receipt Date: 20100317
  Transmission Date: 20100710
  Serious: Yes (Hospitalization)
  Sender: FDA-Public Use
  Company Number: PHHY2009BR59766

PATIENT
  Sex: Female

DRUGS (1)
  1. FORASEQ [Suspect]
     Indication: COUGH
     Dosage: 1 INHALATION OF EACH ACTIVE PRINCIPLE DAILY

REACTIONS (3)
  - CAESAREAN SECTION [None]
  - DRUG EXPOSURE DURING PREGNANCY [None]
  - NORMAL NEWBORN [None]
